FAERS Safety Report 7086142-3 (Version None)
Quarter: 2010Q4

REPORT INFORMATION
  Report Type: 
  Country: None (occurrence: None)
  Receive Date: 20101027
  Receipt Date: 20101021
  Transmission Date: 20110411
  Serious: Yes (Death)
  Sender: FDA-Public Use
  Company Number: 2010US004373

PATIENT
  Age: 28 Year
  Sex: Male

DRUGS (1)
  1. AMBISOME [Suspect]
     Indication: ZYGOMYCOSIS
     Dates: start: 20101014, end: 20101019

REACTIONS (1)
  - DEATH [None]
